FAERS Safety Report 9845885 (Version 1)
Quarter: 2014Q1

REPORT INFORMATION
  Report Type: Spontaneous
  Country: US (occurrence: None)
  Receive Date: 20140122
  Receipt Date: 20140122
  Transmission Date: 20141002
  Serious: Yes (Death)
  Sender: FDA-Public Use
  Company Number: B0960150A

PATIENT
  Age: 55 Year
  Sex: Male

DRUGS (3)
  1. CARVEDILOL [Suspect]
     Dosage: UNK/ORAL
     Route: 048
  2. OXYCODONE + PARACETAMOL [Suspect]
     Dosage: UNK/ORAL
     Route: 048
  3. (UNKNOWN) (FORMULATION UNKNOWN) (GENERIC) (UNKNOWN) [Suspect]
     Dosage: UNK/ORAL
     Route: 048

REACTIONS (1)
  - Exposure via ingestion [None]
